FAERS Safety Report 10247232 (Version 3)
Quarter: 2014Q3

REPORT INFORMATION
  Report Type: Report from Study
  Country: CO (occurrence: CO)
  Receive Date: 20140619
  Receipt Date: 20140828
  Transmission Date: 20150326
  Serious: Yes (Death, Hospitalization)
  Sender: FDA-Public Use
  Company Number: CO-ASTRAZENECA-2014SE44807

PATIENT
  Age: 29315 Day
  Sex: Male

DRUGS (3)
  1. ENALAPRIL [Concomitant]
     Active Substance: ENALAPRIL
  2. BRILINTA [Suspect]
     Active Substance: TICAGRELOR
     Indication: INFARCTION
     Route: 048
     Dates: start: 20131011
  3. ASA [Concomitant]
     Active Substance: ASPIRIN

REACTIONS (4)
  - Cholangitis [Not Recovered/Not Resolved]
  - Death [Fatal]
  - Upper gastrointestinal haemorrhage [Unknown]
  - Lung adenocarcinoma metastatic [Not Recovered/Not Resolved]

NARRATIVE: CASE EVENT DATE: 20140606
